FAERS Safety Report 5014235-0 (Version None)
Quarter: 2006Q2

REPORT INFORMATION
  Report Type: 
  Country: None (occurrence: None)
  Receive Date: 20060414
  Receipt Date: 20060126
  Transmission Date: 20061013
  Serious: No
  Sender: FDA-Public Use
  Company Number: 2005SP004403

PATIENT
  Age: 23 Year
  Sex: Female
  Weight: 78.4723 kg

DRUGS (4)
  1. LUNESTA [Suspect]
     Indication: INSOMNIA
     Dosage: 3 MG;HS;ORAL
     Route: 048
     Dates: start: 20050101
  2. CORTICOSTEROIDS [Concomitant]
  3. OTHER ANTI-ASTHMATICS, INHALANTS [Concomitant]
  4. AMBIEN [Concomitant]

REACTIONS (2)
  - DRUG INEFFECTIVE [None]
  - INSOMNIA [None]
